FAERS Safety Report 22890241 (Version 2)
Quarter: 2024Q1

REPORT INFORMATION
  Report Type: Spontaneous
  Country: US (occurrence: US)
  Receive Date: 20230831
  Receipt Date: 20240305
  Transmission Date: 20240409
  Serious: No
  Sender: FDA-Public Use
  Company Number: US-INCYTE CORPORATION-2023IN008209

PATIENT

DRUGS (1)
  1. OPZELURA [Suspect]
     Active Substance: RUXOLITINIB PHOSPHATE
     Indication: Dyshidrotic eczema
     Dosage: 1.5 PERCENT
     Route: 061

REACTIONS (7)
  - Off label use [Unknown]
  - Product storage error [Unknown]
  - Product physical consistency issue [Unknown]
  - Nasal congestion [Recovering/Resolving]
  - Oropharyngeal discomfort [Recovering/Resolving]
  - Product container issue [Unknown]
  - Drug effective for unapproved indication [Unknown]
